FAERS Safety Report 8494049 (Version 3)
Quarter: 2013Q3

REPORT INFORMATION
  Report Type: Report from Study
  Country: MX (occurrence: MX)
  Receive Date: 20120404
  Receipt Date: 20130916
  Transmission Date: 20140515
  Serious: Yes (Death, Other)
  Sender: FDA-Public Use
  Company Number: PHHY2012MX027252

PATIENT
  Age: 54 Year
  Sex: Female

DRUGS (2)
  1. EXFORGE HCT [Suspect]
     Indication: HYPERTENSION
     Dosage: 1 DF X (160/5/12.5 MG), ONCE A DAY
     Dates: start: 201110
  2. RULITEC [Concomitant]
     Indication: AMYOTROPHIC LATERAL SCLEROSIS
     Dosage: 0.5 DF, HALF TABLET AT MORNING AND HALF TABLET AT NIGHT
     Dates: start: 201010

REACTIONS (6)
  - Respiratory failure [Fatal]
  - Respiratory disorder [Not Recovered/Not Resolved]
  - Speech disorder [Not Recovered/Not Resolved]
  - Salivary hypersecretion [Not Recovered/Not Resolved]
  - Gait disturbance [Not Recovered/Not Resolved]
  - Dysphagia [Not Recovered/Not Resolved]
